FAERS Safety Report 12146427 (Version 1)
Quarter: 2016Q1

REPORT INFORMATION
  Report Type: Spontaneous
  Country: CN (occurrence: CN)
  Receive Date: 20160304
  Receipt Date: 20160304
  Transmission Date: 20160526
  Serious: Yes (Other)
  Sender: FDA-Public Use
  Company Number: CN-SEBELA IRELAND LIMITED-2016SEB00046

PATIENT
  Age: 79 Year
  Sex: Male

DRUGS (3)
  1. FLUVASTATIN [Concomitant]
     Active Substance: FLUVASTATIN SODIUM
  2. HERBS [Concomitant]
     Active Substance: HERBALS
  3. ALLOPURINOL. [Suspect]
     Active Substance: ALLOPURINOL
     Indication: GOUTY ARTHRITIS
     Dosage: UNK
     Route: 065

REACTIONS (6)
  - Chronic obstructive pulmonary disease [Unknown]
  - Osteoporosis [Unknown]
  - Toxic epidermal necrolysis [Unknown]
  - Acute kidney injury [Unknown]
  - Coronary artery disease [Unknown]
  - Hepatic steatosis [Unknown]
